FAERS Safety Report 20733342 (Version 4)
Quarter: 2022Q4

REPORT INFORMATION
  Report Type: Report from Study
  Country: US (occurrence: US)
  Receive Date: 20220421
  Receipt Date: 20221128
  Transmission Date: 20230113
  Serious: Yes (Life-Threatening, Other)
  Sender: FDA-Public Use
  Company Number: US-AUROBINDO-AUR-APL-2022-007366

PATIENT
  Sex: Female

DRUGS (9)
  1. BELINOSTAT [Suspect]
     Active Substance: BELINOSTAT
     Indication: Chondrosarcoma
     Dosage: 9800 UNK
     Route: 065
     Dates: start: 20211004
  2. BELINOSTAT [Suspect]
     Active Substance: BELINOSTAT
     Dosage: 9800 UNK
     Route: 065
     Dates: start: 20211101
  3. BELINOSTAT [Suspect]
     Active Substance: BELINOSTAT
     Dosage: UNK
     Route: 065
     Dates: start: 20211102
  4. DECITABINE [Suspect]
     Active Substance: DECITABINE
     Indication: Chondrosarcoma
     Dosage: 35 MILLIGRAM
     Route: 065
     Dates: start: 20211004
  5. DECITABINE [Suspect]
     Active Substance: DECITABINE
     Dosage: 135 UNK
     Route: 065
     Dates: start: 20211004
  6. DECITABINE [Suspect]
     Active Substance: DECITABINE
     Dosage: 540 UNK
     Route: 065
     Dates: start: 20211004
  7. DECITABINE [Suspect]
     Active Substance: DECITABINE
     Dosage: 35 MILLIGRAM
     Route: 065
     Dates: start: 20211101
  8. DECITABINE [Suspect]
     Active Substance: DECITABINE
     Dosage: 675 UNK
     Route: 065
     Dates: start: 20211101
  9. DECITABINE [Suspect]
     Active Substance: DECITABINE
     Dosage: 540 UNK
     Route: 065
     Dates: start: 20211101

REACTIONS (10)
  - Neutrophil count decreased [Unknown]
  - White blood cell count decreased [Unknown]
  - Pain in extremity [Unknown]
  - Vascular access complication [Unknown]
  - Nausea [Unknown]
  - Fatigue [Unknown]
  - Vomiting [Unknown]
  - Platelet count decreased [Unknown]
  - CD4 lymphocytes decreased [Unknown]
  - Constipation [Unknown]

NARRATIVE: CASE EVENT DATE: 20211004
